FAERS Safety Report 16437483 (Version 4)
Quarter: 2025Q2

REPORT INFORMATION
  Report Type: Spontaneous
  Country: ES (occurrence: ES)
  Receive Date: 20190615
  Receipt Date: 20250624
  Transmission Date: 20250716
  Serious: Yes (Hospitalization, Other)
  Sender: AUROBINDO
  Company Number: ES-AUROBINDO-AUR-APL-2019-022011

PATIENT
  Age: 86 Year
  Sex: Female

DRUGS (1)
  1. OLMESARTAN [Suspect]
     Active Substance: OLMESARTAN
     Indication: Hypertension
     Dosage: 40 MILLIGRAM, ONCE A DAY (TREATED WITH OLMESARTAN, I.N.N 40MG FOR 3 YEARS)
     Route: 048

REACTIONS (8)
  - Diarrhoea [Recovered/Resolved]
  - Metabolic acidosis [Recovering/Resolving]
  - Intra-abdominal fluid collection [Unknown]
  - Intestinal villi atrophy [Unknown]
  - Colitis [Recovered/Resolved]
  - Prerenal failure [Recovering/Resolving]
  - Enteritis [Recovered/Resolved]
  - Gastrointestinal disorder [Recovered/Resolved]
